FAERS Safety Report 11232239 (Version 1)
Quarter: 2015Q3

REPORT INFORMATION
  Report Type: Spontaneous
  Country: US (occurrence: US)
  Receive Date: 20150701
  Receipt Date: 20150701
  Transmission Date: 20151125
  Serious: No
  Sender: FDA-Public Use
  Company Number: US-BAYER-2015-325087

PATIENT
  Age: 81 Year
  Sex: Male

DRUGS (14)
  1. STAXYN [Suspect]
     Active Substance: VARDENAFIL HYDROCHLORIDE TRIHYDRATE
     Indication: ERECTILE DYSFUNCTION
     Dosage: 10 MG, QD
     Route: 048
     Dates: start: 20150608, end: 20150608
  2. LATANOPROST. [Concomitant]
     Active Substance: LATANOPROST
  3. FLUTICASONE [Concomitant]
     Active Substance: FLUTICASONE\FLUTICASONE PROPIONATE
  4. BABY ASPIRIN [Concomitant]
     Active Substance: ASPIRIN
  5. TESTOSTERONE. [Concomitant]
     Active Substance: TESTOSTERONE
  6. SILDENAFIL. [Suspect]
     Active Substance: SILDENAFIL
  7. BENAZEPRIL [Concomitant]
     Active Substance: BENAZEPRIL HYDROCHLORIDE
  8. HYDROCHLOROTHIAZIDE. [Concomitant]
     Active Substance: HYDROCHLOROTHIAZIDE
  9. RANITIDINE [Concomitant]
     Active Substance: RANITIDINE\RANITIDINE HYDROCHLORIDE
  10. WARFARIN [Concomitant]
     Active Substance: WARFARIN
     Dosage: 1/2 PILL EVERY DAY
  11. LORATADINE. [Concomitant]
     Active Substance: LORATADINE
  12. DILTIAZEM [Concomitant]
     Active Substance: DILTIAZEM
  13. SIMVASTATIN. [Concomitant]
     Active Substance: SIMVASTATIN
  14. VIAGRA [Suspect]
     Active Substance: SILDENAFIL CITRATE

REACTIONS (6)
  - Labelled drug-drug interaction medication error [Recovered/Resolved]
  - Hypotension [Recovered/Resolved]
  - Drug ineffective [Recovered/Resolved]
  - Expired product administered [Recovered/Resolved]
  - Food interaction [Recovered/Resolved]
  - Headache [Recovered/Resolved]

NARRATIVE: CASE EVENT DATE: 20150608
